FAERS Safety Report 20111961 (Version 1)
Quarter: 2021Q4

REPORT INFORMATION
  Report Type: Spontaneous
  Country: HR (occurrence: HR)
  Receive Date: 20211125
  Receipt Date: 20211125
  Transmission Date: 20220303
  Serious: Yes (Other)
  Sender: FDA-Public Use
  Company Number: HR-002147023-NVSC2021HR264119

PATIENT
  Age: 74 Year
  Sex: Female

DRUGS (1)
  1. LUCENTIS [Suspect]
     Active Substance: RANIBIZUMAB
     Indication: Neovascular age-related macular degeneration
     Dosage: 3X LUCENTIS IN HIS LEFT EYE AND 4X LUCENTIS IN OD
     Route: 065
     Dates: start: 202010, end: 202104

REACTIONS (2)
  - Visual acuity reduced [Recovering/Resolving]
  - Inappropriate schedule of product administration [Unknown]
